FAERS Safety Report 12962976 (Version 2)
Quarter: 2016Q4

REPORT INFORMATION
  Report Type: Spontaneous
  Country: JP (occurrence: JP)
  Receive Date: 20161122
  Receipt Date: 20161223
  Transmission Date: 20170207
  Serious: Yes (Other)
  Sender: FDA-Public Use
  Company Number: JP-ROCHE-1856436

PATIENT
  Age: 60 Year
  Sex: Female

DRUGS (1)
  1. LUCENTIS [Suspect]
     Active Substance: RANIBIZUMAB
     Indication: DIABETIC RETINAL OEDEMA
     Dosage: UNK
     Route: 031
     Dates: start: 20140811

REACTIONS (5)
  - Macular oedema [Unknown]
  - Visual acuity reduced [Unknown]
  - Retinal aneurysm [Unknown]
  - Retinal exudates [Unknown]
  - Drug resistance [Unknown]

NARRATIVE: CASE EVENT DATE: 20160107
